FAERS Safety Report 21778174 (Version 3)
Quarter: 2023Q1

REPORT INFORMATION
  Report Type: Spontaneous
  Country: US (occurrence: US)
  Receive Date: 20221226
  Receipt Date: 20230202
  Transmission Date: 20230417
  Serious: No
  Sender: FDA-Public Use
  Company Number: US-SA-SAC20221221001159

PATIENT
  Sex: Male

DRUGS (1)
  1. DUPIXENT [Suspect]
     Active Substance: DUPILUMAB
     Indication: Dermatitis atopic
     Dosage: 300 MG, QOW
     Route: 058
     Dates: end: 20230103

REACTIONS (4)
  - Musculoskeletal discomfort [Unknown]
  - Dermatitis atopic [Unknown]
  - Arthralgia [Not Recovered/Not Resolved]
  - Product prescribing issue [Unknown]
